FAERS Safety Report 13652804 (Version 1)
Quarter: 2017Q2

REPORT INFORMATION
  Report Type: Spontaneous
  Country: US (occurrence: US)
  Receive Date: 20170614
  Receipt Date: 20170614
  Transmission Date: 20170830
  Serious: Yes (Other)
  Sender: FDA-Public Use
  Company Number: US-BAYER-2017-108883

PATIENT
  Age: 6 Year
  Sex: Female

DRUGS (1)
  1. MIRENA [Suspect]
     Active Substance: LEVONORGESTREL
     Dosage: UNK
     Route: 064
     Dates: start: 2009

REACTIONS (4)
  - Adverse event [None]
  - Umbilical cord around neck [None]
  - Attention deficit/hyperactivity disorder [None]
  - Premature baby [None]

NARRATIVE: CASE EVENT DATE: 2010
